FAERS Safety Report 6334235-8 (Version None)
Quarter: 2009Q3

REPORT INFORMATION
  Report Type: 
  Country: None (occurrence: None)
  Receive Date: 20090829
  Receipt Date: 20090731
  Transmission Date: 20100115
  Serious: No
  Sender: FDA-Public Use
  Company Number: US-ABBOTT-09P-163-0588561-00

PATIENT
  Sex: Female

DRUGS (11)
  1. SIMCOR [Suspect]
     Indication: BLOOD TRIGLYCERIDES INCREASED
     Dosage: 500/20 AT HS
     Dates: start: 20090723
  2. SIMCOR [Suspect]
     Indication: LOW DENSITY LIPOPROTEIN INCREASED
  3. IMITREX [Concomitant]
     Indication: MIGRAINE
  4. DIOVAN [Concomitant]
     Indication: DRUG USE FOR UNKNOWN INDICATION
  5. PLAVIX [Concomitant]
     Indication: DRUG USE FOR UNKNOWN INDICATION
  6. SPIRIVA [Concomitant]
     Indication: DRUG USE FOR UNKNOWN INDICATION
  7. ACTOS [Concomitant]
     Indication: DRUG USE FOR UNKNOWN INDICATION
  8. DIVALPROEX SODIUM [Concomitant]
     Indication: DRUG USE FOR UNKNOWN INDICATION
  9. SEROQUEL [Concomitant]
     Indication: DRUG USE FOR UNKNOWN INDICATION
  10. KLONOPIN [Concomitant]
     Indication: DRUG USE FOR UNKNOWN INDICATION
  11. EFFEXOR [Concomitant]
     Indication: DRUG USE FOR UNKNOWN INDICATION

REACTIONS (4)
  - ABDOMINAL DISCOMFORT [None]
  - BLOOD GLUCOSE ABNORMAL [None]
  - BLOOD GLUCOSE DECREASED [None]
  - HYPOPHAGIA [None]
